FAERS Safety Report 24738400 (Version 2)
Quarter: 2025Q2

REPORT INFORMATION
  Report Type: Spontaneous
  Country: IN (occurrence: IN)
  Receive Date: 20241216
  Receipt Date: 20250613
  Transmission Date: 20250717
  Serious: Yes (Hospitalization, Other)
  Sender: PFIZER
  Company Number: IN-PFIZER INC-PV202400161461

PATIENT
  Age: 29 Year
  Sex: Female

DRUGS (1)
  1. CRIZOTINIB [Suspect]
     Active Substance: CRIZOTINIB
     Indication: Lung adenocarcinoma stage IV
     Dosage: 250 MG, 2X/DAY
     Route: 048
     Dates: start: 20241106

REACTIONS (8)
  - Malaise [Unknown]
  - Fluid retention [Unknown]
  - Pleural effusion [Unknown]
  - Deep vein thrombosis [Unknown]
  - Dyspnoea exertional [Not Recovered/Not Resolved]
  - Heart rate increased [Unknown]
  - Cough [Recovering/Resolving]
  - Oedema peripheral [Unknown]
